FAERS Safety Report 18462140 (Version 2)
Quarter: 2021Q3

REPORT INFORMATION
  Report Type: Spontaneous
  Country: US (occurrence: US)
  Receive Date: 20201104
  Receipt Date: 20210706
  Transmission Date: 20211014
  Serious: No
  Sender: FDA-Public Use
  Company Number: US-GLAXOSMITHKLINE-US2020212987

PATIENT
  Sex: Female

DRUGS (2)
  1. NUCALA [Suspect]
     Active Substance: MEPOLIZUMAB
     Indication: ASTHMA
     Dosage: 1 DF, PER 28 DAYS
     Route: 065
     Dates: start: 202101
  2. PREDNISONE. [Suspect]
     Active Substance: PREDNISONE
     Indication: ASTHMA
     Dosage: 2.5 MG, DAILY

REACTIONS (11)
  - Pruritus [Unknown]
  - Dry skin [Unknown]
  - Eczema [Unknown]
  - Condition aggravated [Unknown]
  - Dry eye [Unknown]
  - Therapeutic response shortened [Unknown]
  - Urticaria [Unknown]
  - Wheezing [Unknown]
  - Dyspnoea [Unknown]
  - Hair texture abnormal [Unknown]
  - Ocular discomfort [Unknown]
